FAERS Safety Report 7756378-4 (Version None)
Quarter: 2011Q3

REPORT INFORMATION
  Report Type: 
  Country: None (occurrence: None)
  Receive Date: 20110916
  Receipt Date: 20110908
  Transmission Date: 20111222
  Serious: Yes (Hospitalization)
  Sender: FDA-Public Use
  Company Number: DE-ROCHE-801018

PATIENT
  Sex: Male
  Weight: 90 kg

DRUGS (4)
  1. PEGINTERFERON ALFA-2A [Suspect]
     Route: 058
     Dates: start: 20110316
  2. DICLOFENAC SODIUM [Concomitant]
     Dosage: FREQUENCY: PRN MAX OF 3XPER DAY
     Route: 048
     Dates: start: 20110607
  3. CITALOPRAM HYDROBROMIDE [Concomitant]
     Indication: DEPRESSION
     Route: 048
     Dates: end: 20110711
  4. RIBAVIRIN [Suspect]
     Route: 048
     Dates: start: 20110316

REACTIONS (1)
  - PILONIDAL CYST [None]
